FAERS Safety Report 4675735-6 (Version None)
Quarter: 2005Q2

REPORT INFORMATION
  Report Type: 
  Country: None (occurrence: None)
  Receive Date: 20050527
  Receipt Date: 20050304
  Transmission Date: 20051028
  Serious: Yes (Life-Threatening, Hospitalization, Other)
  Sender: FDA-Public Use
  Company Number: US-BRISTOL-MYERS SQUIBB COMPANY-12886875

PATIENT
  Age: 61 Year
  Sex: Male
  Weight: 79 kg

DRUGS (5)
  1. ERBITUX [Suspect]
     Indication: COLON CANCER
     Dosage: LOADING DOSE(784 MG), D/C. ADDITIONAL LOT # 03C00823.
     Route: 042
     Dates: start: 20050304, end: 20050304
  2. BENADRYL [Concomitant]
     Indication: PREMEDICATION
     Route: 042
     Dates: start: 20050304, end: 20050304
  3. DECADRON [Concomitant]
     Indication: PREMEDICATION
     Route: 048
     Dates: start: 20050304, end: 20050304
  4. KYTRIL [Concomitant]
     Indication: PREMEDICATION
     Route: 048
     Dates: start: 20050304, end: 20050304
  5. TYLENOL (CAPLET) [Concomitant]

REACTIONS (1)
  - INFUSION RELATED REACTION [None]
